FAERS Safety Report 8601180-4 (Version None)
Quarter: 2012Q3

REPORT INFORMATION
  Report Type: 
  Country: None (occurrence: None)
  Receive Date: 20120817
  Receipt Date: 20120815
  Transmission Date: 20120928
  Serious: Yes (Other)
  Sender: FDA-Public Use
  Company Number: PHFR2012GB004515

PATIENT
  Sex: Male

DRUGS (5)
  1. ISONIAZID [Concomitant]
  2. ETHAMBUTOL HYDROCHLORIDE [Concomitant]
  3. CLOZARIL [Suspect]
     Indication: SCHIZOPHRENIA
     Route: 048
     Dates: start: 20040223
  4. PYRAZINAMIDE [Concomitant]
  5. RIFABUTIN [Concomitant]

REACTIONS (4)
  - WHITE BLOOD CELL COUNT DECREASED [None]
  - NEUTROPHIL COUNT DECREASED [None]
  - TUBERCULOSIS [None]
  - ANTIPSYCHOTIC DRUG LEVEL INCREASED [None]
